FAERS Safety Report 8501794-6 (Version None)
Quarter: 2012Q3

REPORT INFORMATION
  Report Type: 
  Country: None (occurrence: None)
  Receive Date: 20120705
  Receipt Date: 20120705
  Transmission Date: 20120928
  Serious: Yes (Life-Threatening)
  Sender: FDA-Public Use
  Company Number: None

PATIENT
  Sex: Female
  Weight: 81.6475 kg

DRUGS (1)
  1. PIROXICAM [Suspect]
     Indication: PAIN IN EXTREMITY
     Dosage: 1 CAPSULE DAILY
     Dates: start: 20120523, end: 20120630

REACTIONS (1)
  - BACK PAIN [None]
